FAERS Safety Report 5759956-7 (Version None)
Quarter: 2008Q2

REPORT INFORMATION
  Report Type: 
  Country: None (occurrence: None)
  Receive Date: 20080605
  Receipt Date: 20080525
  Transmission Date: 20081010
  Serious: Yes (Death, Other)
  Sender: FDA-Public Use
  Company Number: DK-ROCHE-566806

PATIENT
  Age: 42 Year
  Sex: Male

DRUGS (5)
  1. RIVOTRIL [Suspect]
     Indication: DRUG USE FOR UNKNOWN INDICATION
     Dosage: DOSAGE REPORTED AS PN.
     Route: 048
  2. CISORDINOL [Suspect]
     Indication: DRUG USE FOR UNKNOWN INDICATION
     Dosage: DRUF REPORTED AS ZUCLOPENTHIXOLDECANOAT/CISORDINOL DEPOT, INJECTIO.
     Route: 065
  3. NOZINAN [Concomitant]
  4. CLOZAPINE [Concomitant]
  5. ANTIPSYCHOTIC NOS [Concomitant]

REACTIONS (6)
  - CONVULSION [None]
  - DROOLING [None]
  - INCORRECT DOSE ADMINISTERED [None]
  - SLUGGISHNESS [None]
  - TREMOR [None]
  - URINARY INCONTINENCE [None]
